FAERS Safety Report 10607649 (Version 1)
Quarter: 2014Q4

REPORT INFORMATION
  Report Type: Spontaneous
  Country: GB (occurrence: GB)
  Receive Date: 20141125
  Receipt Date: 20141125
  Transmission Date: 20150529
  Serious: Yes (Hospitalization, Other)
  Sender: FDA-Public Use
  Company Number: GB-WATSON-2014-25185

PATIENT
  Age: 92 Year
  Sex: Female

DRUGS (2)
  1. FUROSEMIDE (UNKNOWN) [Suspect]
     Active Substance: FUROSEMIDE
     Indication: CARDIAC FAILURE
     Dosage: 40 MG, QAM
     Route: 048
     Dates: end: 20121228
  2. SPIRONOLACTONE (UNKNOWN) [Suspect]
     Active Substance: SPIRONOLACTONE
     Indication: CARDIAC FAILURE
     Dosage: 12.5 MG, QAM
     Route: 048
     Dates: end: 20111228

REACTIONS (5)
  - Acute kidney injury [Recovered/Resolved]
  - Coma scale abnormal [Unknown]
  - Confusional state [Unknown]
  - Lower respiratory tract infection [Unknown]
  - Suprapubic pain [Unknown]

NARRATIVE: CASE EVENT DATE: 20121228
